FAERS Safety Report 23383131 (Version 1)
Quarter: 2024Q1

REPORT INFORMATION
  Report Type: Spontaneous
  Country: US (occurrence: None)
  Receive Date: 20240108
  Receipt Date: 20240108
  Transmission Date: 20240410
  Serious: No
  Sender: FDA-Public Use
  Company Number: None

PATIENT
  Age: 23 Year
  Sex: Female
  Weight: 83.25 kg

DRUGS (2)
  1. MONTELUKAST SODIUM [Suspect]
     Active Substance: MONTELUKAST SODIUM
     Indication: Asthma prophylaxis
     Dosage: 30 TABLETS AT BEDTIME ORAL?
     Route: 048
     Dates: start: 20240102, end: 20240108
  2. ZOLOFT [Concomitant]
     Active Substance: SERTRALINE HYDROCHLORIDE

REACTIONS (9)
  - Agitation [None]
  - Anger [None]
  - Initial insomnia [None]
  - Fatigue [None]
  - Somnolence [None]
  - Fatigue [None]
  - Headache [None]
  - Suicidal ideation [None]
  - Condition aggravated [None]

NARRATIVE: CASE EVENT DATE: 20240102
